FAERS Safety Report 4421189-4 (Version None)
Quarter: 2004Q3

REPORT INFORMATION
  Report Type: 
  Country: None (occurrence: None)
  Receive Date: 20040804
  Receipt Date: 20040722
  Transmission Date: 20050211
  Serious: Yes (Death, Life-Threatening, Other)
  Sender: FDA-Public Use
  Company Number: 2004050323

PATIENT
  Age: 72 Year
  Sex: Male
  Weight: 60 kg

DRUGS (3)
  1. MAGNEX (CEFOPERAZONE, SULBACTAM) [Suspect]
     Indication: PYREXIA
     Dosage: 2 GRAM (1 GRAM, 2 IN 1 D), INTRAVENOUS
     Route: 042
     Dates: start: 20040716, end: 20040716
  2. DEXAMETHASONE [Concomitant]
  3. SOLUTIONS PER PARENTERAL NUTRITION (SOLUTIONS FOR PARENTERAL NUTRITION [Concomitant]

REACTIONS (7)
  - CHILLS [None]
  - DRUG HYPERSENSITIVITY [None]
  - DRUG INTERACTION [None]
  - HAEMORRHAGE INTRACRANIAL [None]
  - OEDEMA [None]
  - PRURITUS GENERALISED [None]
  - PYREXIA [None]
